FAERS Safety Report 3617745 (Version 2)
Quarter: 2012Q4

REPORT INFORMATION
  Report Type: 
  Country: CA (occurrence: CA)
  Receive Date: 20010305
  Receipt Date: 20121109
  Transmission Date: 20130627
  Serious: Yes (Other)
  Sender: FDA-Public Use
  Company Number: PHBS2000CA08763

PATIENT
  Age: 76 Year
  Sex: Female

DRUGS (4)
  1. EXELON [Suspect]
     Indication: DEMENTIA ALZHEIMER^S TYPE
     Dosage: 1.5 mg, BID
     Route: 048
     Dates: start: 20000808
  2. EXELON [Suspect]
     Dosage: 1.5 mg, ONCE/DIALY
     Route: 048
     Dates: start: 20000808
  3. EXELON [Suspect]
     Dosage: 3.0 mg, ONCE/DIALY
     Route: 048
     Dates: start: 20000808
  4. CALCIUM WITH VITAMIN D [Concomitant]

REACTIONS (10)
  - Convulsion [Recovered/Resolved]
  - Muscle rigidity [Recovered/Resolved]
  - Muscle spasms [Recovered/Resolved]
  - Dysstasia [Recovered/Resolved]
  - Dyspnoea [Recovered/Resolved]
  - Speech disorder [Recovered/Resolved]
  - Serum ferritin increased [Unknown]
  - Headache [Recovered/Resolved]
  - Vomiting [Recovered/Resolved]
  - Nausea [Not Recovered/Not Resolved]
